FAERS Safety Report 20091722 (Version 1)
Quarter: 2021Q4

REPORT INFORMATION
  Report Type: Spontaneous
  Country: CA (occurrence: CA)
  Receive Date: 20211119
  Receipt Date: 20211119
  Transmission Date: 20220303
  Serious: Yes (Hospitalization)
  Sender: FDA-Public Use
  Company Number: CA-TEVA-2021-CA-1978158

PATIENT
  Age: 72 Year
  Sex: Male
  Weight: 76 kg

DRUGS (10)
  1. CEPHALEXIN [Suspect]
     Active Substance: CEPHALEXIN
     Indication: Skin ulcer
     Dosage: 2000 MILLIGRAM DAILY;
     Route: 048
  2. ACETAMINOPHEN [Concomitant]
     Active Substance: ACETAMINOPHEN
  3. CYANOCOBALAMIN [Concomitant]
     Active Substance: CYANOCOBALAMIN
  4. DIVALPROEX SODIUM [Concomitant]
     Active Substance: DIVALPROEX SODIUM
  5. FERROUS SULFATE [Concomitant]
     Active Substance: FERROUS SULFATE
  6. MELATONIN [Concomitant]
     Active Substance: MELATONIN
  7. MIRTAZAPINE [Concomitant]
     Active Substance: MIRTAZAPINE
  8. QUETIAPINE [Concomitant]
     Active Substance: QUETIAPINE
  9. VITAMIN D3 [Concomitant]
     Active Substance: CHOLECALCIFEROL
  10. ZOPICLONE [Concomitant]
     Active Substance: ZOPICLONE

REACTIONS (4)
  - Aggression [Recovering/Resolving]
  - Clostridium difficile infection [Recovering/Resolving]
  - Dementia [Recovering/Resolving]
  - Mood altered [Recovering/Resolving]
